FAERS Safety Report 7651042-4 (Version None)
Quarter: 2011Q3

REPORT INFORMATION
  Report Type: 
  Country: None (occurrence: None)
  Receive Date: 20110802
  Receipt Date: 20090402
  Transmission Date: 20111222
  Serious: Yes (Death, Other)
  Sender: FDA-Public Use
  Company Number: US-BAYER-200823292NA

PATIENT
  Sex: Male
  Weight: 90.7 kg

DRUGS (38)
  1. MAGNEVIST [Suspect]
     Indication: NUCLEAR MAGNETIC RESONANCE IMAGING
     Dates: start: 20060401, end: 20060401
  2. GADOLINIUM IN UNSPECIFIED DRUG [Suspect]
     Indication: NUCLEAR MAGNETIC RESONANCE IMAGING
     Dosage: UNK UNK, ONCE
     Dates: start: 20030611, end: 20030611
  3. PLAVIX [Concomitant]
  4. COREG [Concomitant]
  5. TORSEMIDE [Concomitant]
  6. MAGNEVIST [Suspect]
     Dosage: UNK, ONCE
     Dates: start: 20060819, end: 20060819
  7. PHOSLO [Concomitant]
  8. ARANESP [Concomitant]
  9. WARFARIN SODIUM [Concomitant]
  10. NORCO [Concomitant]
  11. MAGNEVIST [Suspect]
  12. GADOLINIUM IN UNSPECIFIED DRUG [Suspect]
     Dosage: UNK, ONCE
     Dates: start: 20060529, end: 20060529
  13. METOPROLOL TARTRATE [Concomitant]
  14. EPOETIN NOS [Concomitant]
  15. CALCIUM ACETATE [Concomitant]
  16. TRICOR [Concomitant]
  17. LACTULOSE [Concomitant]
  18. GADOLINIUM IN UNSPECIFIED DRUG [Suspect]
     Indication: ANGIOGRAM
     Dosage: UNK, ONCE
     Dates: start: 20060410, end: 20060410
  19. PREDNISONE [Concomitant]
  20. ACETYLSALICYLIC ACID SRT [Concomitant]
  21. HYDRALAZINE HCL [Concomitant]
  22. ENALAPRIL MALEATE [Concomitant]
  23. ACETAMINOPHEN [Concomitant]
  24. IBUPROFEN [Concomitant]
  25. NOVOLOG [Concomitant]
  26. MAGNEVIST [Suspect]
     Dosage: UNK, ONCE
     Dates: start: 20060824, end: 20060824
  27. NORVASC [Concomitant]
  28. HEPARIN [Concomitant]
  29. GADOLINIUM IN UNSPECIFIED DRUG [Suspect]
  30. GLIPIZIDE [Concomitant]
  31. PROBENECID [Concomitant]
  32. MINOXIDIL [Concomitant]
  33. PHOSPHATES [Concomitant]
  34. FERROUS SULFATE TAB [Concomitant]
  35. ZOCOR [Concomitant]
  36. LASIX [Concomitant]
  37. CALCITRIOL [Concomitant]
  38. PANTOPRAZOLE SODIUM [Concomitant]

REACTIONS (12)
  - SKIN FIBROSIS [None]
  - JOINT CONTRACTURE [None]
  - MYOSCLEROSIS [None]
  - INJURY [None]
  - EMOTIONAL DISTRESS [None]
  - GENERAL PHYSICAL HEALTH DETERIORATION [None]
  - SCAR [None]
  - SKIN INDURATION [None]
  - FIBROSIS [None]
  - NEPHROGENIC SYSTEMIC FIBROSIS [None]
  - PAIN [None]
  - ABASIA [None]
